FAERS Safety Report 6723752-4 (Version None)
Quarter: 2010Q2

REPORT INFORMATION
  Report Type: 
  Country: None (occurrence: None)
  Receive Date: 20100511
  Receipt Date: 20100427
  Transmission Date: 20101027
  Serious: No
  Sender: FDA-Public Use
  Company Number: 2010-00395

PATIENT
  Sex: Female

DRUGS (3)
  1. ZICAM COLD REMEDY GEL SWABS [Suspect]
  2. ZICAM COLD REMEDY NASAL GEL [Suspect]
  3. ZICAM KIDS COLD REMEDY GEL SWABS [Suspect]

REACTIONS (1)
  - ANOSMIA [None]
